FAERS Safety Report 16735605 (Version 1)
Quarter: 2019Q3

REPORT INFORMATION
  Report Type: Spontaneous
  Country: US (occurrence: US)
  Receive Date: 20190823
  Receipt Date: 20190823
  Transmission Date: 20191005
  Serious: Yes (Hospitalization, Disabling)
  Sender: FDA-Public Use
  Company Number: None

PATIENT
  Age: 50 Year
  Sex: Female
  Weight: 99 kg

DRUGS (1)
  1. LEVOFLOXACIN. [Suspect]
     Active Substance: LEVOFLOXACIN
     Indication: PNEUMONIA MYCOPLASMAL
     Dosage: ?          QUANTITY:1 TABLET(S);?
     Route: 048

REACTIONS (1)
  - Tendon rupture [None]

NARRATIVE: CASE EVENT DATE: 20190816
